FAERS Safety Report 10530566 (Version 1)
Quarter: 2014Q4

REPORT INFORMATION
  Report Type: Spontaneous
  Country: PE (occurrence: PE)
  Receive Date: 20141021
  Receipt Date: 20141021
  Transmission Date: 20150528
  Serious: Yes (Other)
  Sender: FDA-Public Use
  Company Number: PE-PFIZER INC-2014285978

PATIENT
  Age: 53 Year
  Sex: Female

DRUGS (1)
  1. CLORELASE [Suspect]
     Active Substance: CHLORAMPHENICOL\DORNASE ALFA\FIBRINOLYSIN
     Route: 065

REACTIONS (1)
  - Wound infection [Unknown]
